FAERS Safety Report 12891336 (Version 1)
Quarter: 2016Q4

REPORT INFORMATION
  Report Type: Spontaneous
  Country: US (occurrence: US)
  Receive Date: 20161026
  Receipt Date: 20161026
  Transmission Date: 20170207
  Serious: Yes (Disabling, Other)
  Sender: FDA-Public Use
  Company Number: None

PATIENT
  Age: 62 Year
  Sex: Female
  Weight: 58.05 kg

DRUGS (9)
  1. SYNTHROID [Concomitant]
     Active Substance: LEVOTHYROXINE SODIUM
  2. TRAMADOL. [Concomitant]
     Active Substance: TRAMADOL
  3. GNC VITAMINS [Concomitant]
  4. VALIUM [Concomitant]
     Active Substance: DIAZEPAM
  5. SAPHRIS [Suspect]
     Active Substance: ASENAPINE MALEATE
     Indication: SLEEP DISORDER
     Dosage: ?          QUANTITY:1 TABLET(S);?
     Route: 060
     Dates: start: 20160108, end: 20161010
  6. PERCOCET [Concomitant]
     Active Substance: ACETAMINOPHEN\OXYCODONE HYDROCHLORIDE
  7. XANAX [Concomitant]
     Active Substance: ALPRAZOLAM
  8. ROBAZIN [Concomitant]
  9. TRAZODONE [Concomitant]
     Active Substance: TRAZODONE HYDROCHLORIDE

REACTIONS (4)
  - Spinal pain [None]
  - Ligament sprain [None]
  - Intervertebral disc protrusion [None]
  - Neuralgia [None]

NARRATIVE: CASE EVENT DATE: 20160110
